FAERS Safety Report 26141078 (Version 1)
Quarter: 2025Q4

REPORT INFORMATION
  Report Type: Spontaneous
  Country: EU (occurrence: EU)
  Receive Date: 20251210
  Receipt Date: 20251210
  Transmission Date: 20260118
  Serious: Yes (Hospitalization, Other)
  Sender: Kenvue
  Company Number: None

PATIENT
  Age: 71 Year
  Weight: 73 kg

DRUGS (9)
  1. CETIRIZINE HYDROCHLORIDE [Suspect]
     Active Substance: CETIRIZINE HYDROCHLORIDE
     Indication: Plasma cell myeloma
     Dosage: EVERY MONDAY
  2. AMOXICILLIN [Suspect]
     Active Substance: AMOXICILLIN
     Indication: Plasma cell myeloma
     Dosage: 1 GRAM, ONCE A DAY
  3. BACTRIM [Suspect]
     Active Substance: SULFAMETHOXAZOLE\TRIMETHOPRIM
     Indication: Plasma cell myeloma
     Dosage: ON MONDAYS, WEDNESDAYS, FRIDAYS
  4. VALACYCLOVIR HYDROCHLORIDE [Suspect]
     Active Substance: VALACYCLOVIR HYDROCHLORIDE
     Indication: Plasma cell myeloma
     Dosage: 1 GRAM, ONCE A DAY
  5. REVLIMID [Suspect]
     Active Substance: LENALIDOMIDE
     Indication: Plasma cell myeloma
     Dosage: FOR 21 OUT OF 28 DAYS OF THE CYCLE
  6. VELCADE [Suspect]
     Active Substance: BORTEZOMIB
     Indication: Plasma cell myeloma
     Dosage: EVERY MONDAY
  7. DARZALEX [Suspect]
     Active Substance: DARATUMUMAB
     Indication: Plasma cell myeloma
     Dosage: THEN EVERY 15 DAYS
  8. DEXAMETHASONE [Suspect]
     Active Substance: DEXAMETHASONE
     Indication: Plasma cell myeloma
     Dosage: EVERY MONDAY
  9. ELIQUIS [Suspect]
     Active Substance: APIXABAN
     Indication: Plasma cell myeloma
     Dosage: 5 MILLIGRAM, ONCE A DAY

REACTIONS (1)
  - Drug reaction with eosinophilia and systemic symptoms [Not Recovered/Not Resolved]
